FAERS Safety Report 8611798-0 (Version None)
Quarter: 2012Q3

REPORT INFORMATION
  Report Type: 
  Country: None (occurrence: None)
  Receive Date: 20120822
  Receipt Date: 20120730
  Transmission Date: 20120928
  Serious: Yes (Death, Other)
  Sender: FDA-Public Use
  Company Number: US-ROCHE-1098120

PATIENT

DRUGS (3)
  1. AVASTIN [Suspect]
     Indication: GLIOBLASTOMA
     Dosage: EVERY OTHER WEEK FOR UP TO 12 WEEKS.
     Route: 042
  2. TEMOZOLOMIDE [Suspect]
     Indication: GLIOBLASTOMA
  3. TEMOZOLOMIDE [Suspect]
     Dosage: 1-7 AND 15-21 OF A 28 DAY CYCLE

REACTIONS (9)
  - SEPSIS [None]
  - FEBRILE NEUTROPENIA [None]
  - HAEMORRHAGE INTRACRANIAL [None]
  - FUNGAL INFECTION [None]
  - RENAL FAILURE ACUTE [None]
  - RENAL FAILURE [None]
  - PULMONARY EMBOLISM [None]
  - ACUTE LUNG INJURY [None]
  - DEEP VEIN THROMBOSIS [None]
